FAERS Safety Report 6688128-7 (Version None)
Quarter: 2010Q2

REPORT INFORMATION
  Report Type: 
  Country: None (occurrence: None)
  Receive Date: 20100420
  Receipt Date: 20100408
  Transmission Date: 20101027
  Serious: Yes (Hospitalization, Other)
  Sender: FDA-Public Use
  Company Number: US-PFIZER INC-2009288442

PATIENT
  Sex: Male

DRUGS (3)
  1. SUTENT [Suspect]
     Indication: METASTATIC RENAL CELL CARCINOMA
     Dosage: 12.5 MG, 4X/DAY, CYCLE 4/2
     Route: 048
     Dates: start: 20090920, end: 20100221
  2. INSULIN [Concomitant]
     Indication: DIABETES MELLITUS
     Dosage: 4X/DAY
  3. LISINOPRIL [Concomitant]
     Indication: HYPERTENSION

REACTIONS (5)
  - ACUTE MYOCARDIAL INFARCTION [None]
  - NEPHROLITHIASIS [None]
  - PULMONARY EMBOLISM [None]
  - RENAL FAILURE ACUTE [None]
  - VOMITING [None]
